APPROVED DRUG PRODUCT: PENNTUSS
Active Ingredient: CHLORPHENIRAMINE POLISTIREX; CODEINE POLISTIREX
Strength: EQ 4MG MALEATE/5ML;EQ 10MG BASE/5ML
Dosage Form/Route: SUSPENSION, EXTENDED RELEASE;ORAL
Application: N018928 | Product #001
Applicant: FISONS CORP
Approved: Aug 14, 1985 | RLD: No | RS: No | Type: DISCN